FAERS Safety Report 4565651-2 (Version None)
Quarter: 2005Q1

REPORT INFORMATION
  Report Type: 
  Country: None (occurrence: None)
  Receive Date: 20050126
  Receipt Date: 20050121
  Transmission Date: 20050727
  Serious: Yes (Life-Threatening, Hospitalization)
  Sender: FDA-Public Use
  Company Number: TPA2004A01418

PATIENT
  Age: 7 Decade
  Sex: Female

DRUGS (2)
  1. ACTOS [Suspect]
     Dosage: SEE IMAGE
     Route: 048
     Dates: end: 20041111
  2. SYNTHROID [Concomitant]

REACTIONS (5)
  - BLOOD GLUCOSE INCREASED [None]
  - HEPATIC FAILURE [None]
  - HEPATITIS ACUTE [None]
  - HEPATOCELLULAR DAMAGE [None]
  - PANCREATIC CARCINOMA [None]
